FAERS Safety Report 16564355 (Version 1)
Quarter: 2019Q3

REPORT INFORMATION
  Report Type: Spontaneous
  Country: US (occurrence: US)
  Receive Date: 20190711
  Receipt Date: 20190711
  Transmission Date: 20191004
  Serious: No
  Sender: FDA-Public Use
  Company Number: None

PATIENT
  Age: 29 Year
  Sex: Female
  Weight: 77.4 kg

DRUGS (2)
  1. MULTIVITAMIN [Concomitant]
     Active Substance: VITAMINS
  2. ZYRTEC [Concomitant]
     Active Substance: CETIRIZINE HYDROCHLORIDE
     Indication: SEASONAL ALLERGY
     Dosage: ?          QUANTITY:1 TABLET(S);OTHER FREQUENCY:EVERY 48 HRS;?
     Route: 048
     Dates: start: 20140303, end: 20190708

REACTIONS (3)
  - Pruritus [None]
  - Withdrawal syndrome [None]
  - Product use complaint [None]

NARRATIVE: CASE EVENT DATE: 20180101
